FAERS Safety Report 25961707 (Version 1)
Quarter: 2025Q4

REPORT INFORMATION
  Report Type: Spontaneous
  Country: US (occurrence: US)
  Receive Date: 20251027
  Receipt Date: 20251027
  Transmission Date: 20260117
  Serious: No
  Sender: BIONPHARMA INC.
  Company Number: US-Bion-015285

PATIENT
  Age: 90 Year
  Sex: Male

DRUGS (1)
  1. LOPERAMIDE HYDROCHLORIDE [Suspect]
     Active Substance: LOPERAMIDE HYDROCHLORIDE
     Indication: Diarrhoea
     Dosage: 2 SOFT GELS, AND THEN 1 AGAIN ONCE LOOSE STOOL COMES BACK AFTER SEVERAL DAYS
     Route: 048
     Dates: start: 20250816

REACTIONS (1)
  - Inappropriate schedule of product administration [Unknown]
